FAERS Safety Report 21029554 (Version 2)
Quarter: 2022Q3

REPORT INFORMATION
  Report Type: Spontaneous
  Country: RU (occurrence: RU)
  Receive Date: 20220630
  Receipt Date: 20220715
  Transmission Date: 20221027
  Serious: Yes (Hospitalization, Other)
  Sender: FDA-Public Use
  Company Number: RU-TEVA-2022-RU-2049760

PATIENT
  Sex: Female

DRUGS (19)
  1. VINCRISTINE [Suspect]
     Active Substance: VINCRISTINE
     Indication: Post transplant lymphoproliferative disorder
     Dosage: 1ST COURSE OF CHOD PROTOCOL IN COMBINATION WITH RITUXIMAB
     Route: 065
     Dates: start: 20170831, end: 20170905
  2. VINCRISTINE [Suspect]
     Active Substance: VINCRISTINE
     Indication: Diffuse large B-cell lymphoma
     Dosage: FIVE R-CHOD COURSES WERE PERFORMED.
     Route: 065
     Dates: start: 20170926, end: 20180111
  3. MYCOPHENOLATE MOFETIL [Suspect]
     Active Substance: MYCOPHENOLATE MOFETIL
     Indication: Immunosuppressant drug therapy
     Route: 065
     Dates: start: 2011, end: 2016
  4. PREDNISOLONE [Suspect]
     Active Substance: PREDNISOLONE
     Indication: Glomerulonephritis acute
     Route: 065
     Dates: start: 1996
  5. PREDNISOLONE [Suspect]
     Active Substance: PREDNISOLONE
     Indication: Glomerulonephritis acute
     Dosage: 5 MILLIGRAM DAILY;
     Route: 065
     Dates: start: 201804, end: 20190501
  6. TACROLIMUS [Suspect]
     Active Substance: TACROLIMUS
     Indication: Immunosuppressant drug therapy
     Route: 065
     Dates: start: 2011, end: 20170824
  7. TACROLIMUS [Suspect]
     Active Substance: TACROLIMUS
     Dosage: 2 MILLIGRAM DAILY;
     Route: 065
     Dates: start: 201804, end: 20190501
  8. METHYLPREDNISOLONE [Suspect]
     Active Substance: METHYLPREDNISOLONE
     Indication: Immunosuppressant drug therapy
     Route: 065
     Dates: start: 2011, end: 20170824
  9. AZATHIOPRINE [Suspect]
     Active Substance: AZATHIOPRINE
     Indication: Immunosuppressant drug therapy
     Route: 065
     Dates: start: 2016, end: 2017
  10. DEXAMETHASONE [Suspect]
     Active Substance: DEXAMETHASONE
     Indication: Post transplant lymphoproliferative disorder
     Route: 065
     Dates: start: 20170826, end: 20170830
  11. DEXAMETHASONE [Suspect]
     Active Substance: DEXAMETHASONE
     Indication: Diffuse large B-cell lymphoma
     Dosage: 1ST COURSE OF CHOD PROTOCOL IN COMBINATION WITH RITUXIMAB
     Route: 065
     Dates: start: 20170831, end: 20170905
  12. DEXAMETHASONE [Suspect]
     Active Substance: DEXAMETHASONE
     Dosage: FIVE R-CHOD COURSES WERE PERFORMED.
     Route: 065
     Dates: start: 20170926, end: 20180111
  13. CYCLOPHOSPHAMIDE [Suspect]
     Active Substance: CYCLOPHOSPHAMIDE
     Indication: Post transplant lymphoproliferative disorder
     Route: 065
     Dates: start: 20170826, end: 20170830
  14. CYCLOPHOSPHAMIDE [Suspect]
     Active Substance: CYCLOPHOSPHAMIDE
     Indication: Diffuse large B-cell lymphoma
     Dosage: 1ST COURSE OF CHOD PROTOCOL IN COMBINATION WITH RITUXIMAB
     Route: 065
     Dates: start: 20170831, end: 20170905
  15. CYCLOPHOSPHAMIDE [Suspect]
     Active Substance: CYCLOPHOSPHAMIDE
     Dosage: FIVE R-CHOD COURSES WERE PERFORMED.
     Route: 065
     Dates: start: 20170926, end: 20180111
  16. RITUXIMAB [Suspect]
     Active Substance: RITUXIMAB
     Indication: Post transplant lymphoproliferative disorder
     Dosage: 1ST COURSE OF CHOD PROTOCOL IN COMBINATION WITH RITUXIMAB
     Route: 065
     Dates: start: 20170831, end: 20170905
  17. RITUXIMAB [Suspect]
     Active Substance: RITUXIMAB
     Indication: Diffuse large B-cell lymphoma
     Dosage: FIVE R-CHOD COURSES WERE PERFORMED.
     Route: 065
     Dates: start: 20170926, end: 20180111
  18. DOXORUBICIN [Suspect]
     Active Substance: DOXORUBICIN
     Indication: Post transplant lymphoproliferative disorder
     Dosage: 1ST COURSE OF CHOD PROTOCOL IN COMBINATION WITH RITUXIMAB
     Route: 065
     Dates: start: 20170831, end: 20170905
  19. DOXORUBICIN [Suspect]
     Active Substance: DOXORUBICIN
     Indication: Diffuse large B-cell lymphoma
     Dosage: FIVE R-CHOD COURSES WERE PERFORMED.
     Route: 065
     Dates: start: 20170926, end: 20180111

REACTIONS (13)
  - Post transplant lymphoproliferative disorder [Recovered/Resolved]
  - Diffuse large B-cell lymphoma [Recovered/Resolved]
  - Pyrexia [Unknown]
  - Oropharyngeal candidiasis [Unknown]
  - Pneumonia [Unknown]
  - Hypotension [Unknown]
  - Adrenal insufficiency [Unknown]
  - Septic shock [Unknown]
  - Pneumonia [Unknown]
  - Respiratory failure [Unknown]
  - Acute kidney injury [Unknown]
  - Disease recurrence [Recovered/Resolved]
  - Coagulopathy [Unknown]

NARRATIVE: CASE EVENT DATE: 20170101
